FAERS Safety Report 6919957-X (Version None)
Quarter: 2010Q3

REPORT INFORMATION
  Report Type: 
  Country: None (occurrence: None)
  Receive Date: 20100811
  Receipt Date: 20100803
  Transmission Date: 20110219
  Serious: Yes (Hospitalization, Other)
  Sender: FDA-Public Use
  Company Number: PHHO2010US10259

PATIENT
  Sex: Male
  Weight: 59.6 kg

DRUGS (24)
  1. MYCOPHENOLIC ACID [Suspect]
     Indication: RENAL TRANSPLANT
     Dosage: UNK
     Route: 048
     Dates: start: 20100210, end: 20100602
  2. MYCOPHENOLIC ACID [Suspect]
     Dosage: 1440MG/DAY
     Route: 048
     Dates: start: 20100603, end: 20100609
  3. MYCOPHENOLIC ACID [Suspect]
     Dosage: 1080MG/DAY
     Route: 048
     Dates: start: 20100610, end: 20100613
  4. MYCOPHENOLIC ACID [Suspect]
     Dosage: 720MG/DAY
     Route: 048
     Dates: start: 20100614
  5. MYCOPHENOLIC ACID [Suspect]
     Dosage: 180 MG, BID
     Route: 048
     Dates: start: 20100722
  6. TACROLIMUS COMP-TAC+ [Suspect]
     Indication: RENAL TRANSPLANT
     Route: 048
  7. RAPAMUNE COMP-RAP+ [Suspect]
     Indication: RENAL TRANSPLANT
     Dosage: 5 MG, BID
     Route: 048
     Dates: start: 20100603, end: 20100604
  8. RAPAMUNE COMP-RAP+ [Suspect]
     Dosage: 3 MG, BID
     Route: 048
     Dates: start: 20100605, end: 20100609
  9. RAPAMUNE COMP-RAP+ [Suspect]
     Dosage: 3 MG, QD
     Route: 048
     Dates: start: 20100610
  10. RAPAMUNE COMP-RAP+ [Suspect]
     Dosage: 2MG/DAY
     Route: 048
  11. RAPAMUNE COMP-RAP+ [Suspect]
     Dosage: 5 MG DAILY
     Dates: start: 20100722
  12. PREDNISONE TAB [Concomitant]
  13. PRENATAL VITAMINS [Concomitant]
  14. VALGANCICLOVIR [Concomitant]
  15. ACETAMINOPHEN [Concomitant]
  16. CALCIUM CARBONATE [Concomitant]
  17. ZITHROMAX [Concomitant]
  18. VALCYTE [Concomitant]
  19. BACTRIM [Concomitant]
  20. CALCIUM [Concomitant]
  21. CARVEDILOL [Concomitant]
  22. DOCUSATE [Concomitant]
  23. ERGOCALCIFEROL [Concomitant]
  24. MULTI-VITAMINS [Concomitant]

REACTIONS (15)
  - COUGH [None]
  - DEHYDRATION [None]
  - DIZZINESS [None]
  - DRUG LEVEL ABOVE THERAPEUTIC [None]
  - FATIGUE [None]
  - LEUKOPENIA [None]
  - MUCOSAL ULCERATION [None]
  - NEUTROPENIA [None]
  - OROPHARYNGEAL PAIN [None]
  - PYREXIA [None]
  - RHINOVIRUS INFECTION [None]
  - STOMATITIS [None]
  - SUPERINFECTION BACTERIAL [None]
  - TONSILLITIS [None]
  - VIRAL PHARYNGITIS [None]
